APPROVED DRUG PRODUCT: LISINOPRIL AND HYDROCHLOROTHIAZIDE
Active Ingredient: HYDROCHLOROTHIAZIDE; LISINOPRIL
Strength: 25MG;20MG
Dosage Form/Route: TABLET;ORAL
Application: A075869 | Product #003
Applicant: TEVA PHARMACEUTICALS USA INC
Approved: Jul 1, 2002 | RLD: No | RS: No | Type: DISCN